FAERS Safety Report 9904249 (Version 1)
Quarter: 2014Q1

REPORT INFORMATION
  Report Type: Spontaneous
  Country: US (occurrence: US)
  Receive Date: 20140218
  Receipt Date: 20140218
  Transmission Date: 20141002
  Serious: Yes (Other)
  Sender: FDA-Public Use
  Company Number: US-ROCHE-1350484

PATIENT
  Sex: Female

DRUGS (15)
  1. XOLAIR [Suspect]
     Indication: ASTHMA
     Route: 058
  2. SINGULAIR [Concomitant]
  3. CALAN [Concomitant]
     Route: 065
  4. LIPITOR [Concomitant]
     Route: 065
  5. DULERA [Concomitant]
     Route: 065
  6. ZANTAC [Concomitant]
     Route: 065
  7. FLONASE [Concomitant]
  8. PRILOSEC [Concomitant]
     Route: 065
  9. ZYRTEC [Concomitant]
  10. PLAVIX [Concomitant]
     Route: 065
  11. BABY ASPIRIN [Concomitant]
     Route: 065
  12. XOPENEX HFA [Concomitant]
     Route: 055
  13. DIAMOX [Concomitant]
     Route: 065
  14. MICRONOR [Concomitant]
  15. QVAR [Concomitant]
     Route: 055

REACTIONS (2)
  - Dyspnoea [Unknown]
  - Chest discomfort [Unknown]
